FAERS Safety Report 23736477 (Version 1)
Quarter: 2024Q2

REPORT INFORMATION
  Report Type: Spontaneous
  Country: US (occurrence: US)
  Receive Date: 20240412
  Receipt Date: 20240412
  Transmission Date: 20240716
  Serious: Yes (Other)
  Sender: FDA-Public Use
  Company Number: US-ASTELLAS-2023US019468

PATIENT
  Age: 13 Year
  Sex: Male

DRUGS (6)
  1. TACROLIMUS [Suspect]
     Active Substance: TACROLIMUS
     Indication: Multisystem inflammatory syndrome
     Dosage: UNK UNK, UNKNOWN FREQ.
     Route: 065
  2. TACROLIMUS [Suspect]
     Active Substance: TACROLIMUS
     Indication: Graft versus host disease
  3. JAKAFI [Suspect]
     Active Substance: RUXOLITINIB
     Indication: Graft versus host disease in gastrointestinal tract
     Route: 048
     Dates: start: 20230313, end: 20230429
  4. JAKAFI [Suspect]
     Active Substance: RUXOLITINIB
     Indication: Graft versus host disease in skin
  5. TRAMETINIB [Suspect]
     Active Substance: TRAMETINIB
     Indication: Multisystem inflammatory syndrome
     Dosage: UNK UNK, UNKNOWN FREQ.
     Route: 065
  6. TRAMETINIB [Suspect]
     Active Substance: TRAMETINIB
     Indication: Graft versus host disease

REACTIONS (3)
  - Adenovirus infection [Unknown]
  - Viraemia [Unknown]
  - Off label use [Unknown]
